APPROVED DRUG PRODUCT: METOPROLOL TARTRATE
Active Ingredient: METOPROLOL TARTRATE
Strength: 50MG
Dosage Form/Route: TABLET;ORAL
Application: A074258 | Product #001
Applicant: APOTHECON INC DIV BRISTOL MYERS SQUIBB
Approved: Jan 27, 1994 | RLD: No | RS: No | Type: DISCN